FAERS Safety Report 7878295 (Version 6)
Quarter: 2014Q1

REPORT INFORMATION
  Report Type: Spontaneous
  Country: US (occurrence: US)
  Receive Date: 20110330
  Receipt Date: 20140326
  Transmission Date: 20141002
  Serious: Yes (Hospitalization, Other)
  Sender: FDA-Public Use
  Company Number: US-BAYER-2011-026907

PATIENT
  Age: 28 Year
  Sex: Female
  Weight: 54.88 kg

DRUGS (1)
  1. YASMIN [Suspect]
     Indication: CONTRACEPTION
     Dosage: UNK
     Dates: start: 1994, end: 2003

REACTIONS (9)
  - Cholecystectomy [None]
  - Cholecystitis chronic [None]
  - Bile duct stone [None]
  - Pain [None]
  - Emotional distress [None]
  - Anxiety [None]
  - General physical health deterioration [None]
  - Injury [None]
  - Anhedonia [None]
